FAERS Safety Report 7702265-7 (Version None)
Quarter: 2011Q3

REPORT INFORMATION
  Report Type: 
  Country: None (occurrence: None)
  Receive Date: 20110822
  Receipt Date: 20110812
  Transmission Date: 20111222
  Serious: Yes (Other)
  Sender: FDA-Public Use
  Company Number: US-ASTRAZENECA-2011SE48609

PATIENT
  Age: 434 Month
  Sex: Male

DRUGS (2)
  1. PRILOSEC [Suspect]
     Indication: GASTROOESOPHAGEAL REFLUX DISEASE
     Route: 048
  2. COPAXONE [Suspect]
     Indication: MULTIPLE SCLEROSIS
     Route: 058
     Dates: start: 20110113

REACTIONS (5)
  - ABDOMINAL DISCOMFORT [None]
  - VITAMIN B12 DEFICIENCY [None]
  - BRAIN HYPOXIA [None]
  - DYSPNOEA [None]
  - INFLAMMATORY BOWEL DISEASE [None]
